FAERS Safety Report 15201126 (Version 2)
Quarter: 2018Q3

REPORT INFORMATION
  Report Type: Spontaneous
  Country: US (occurrence: US)
  Receive Date: 20180726
  Receipt Date: 20180727
  Transmission Date: 20181010
  Serious: Yes (Other)
  Sender: FDA-Public Use
  Company Number: US-PFIZER INC-2018296880

PATIENT
  Age: 84 Year
  Sex: Female
  Weight: 54.42 kg

DRUGS (1)
  1. PROTONIX [Suspect]
     Active Substance: PANTOPRAZOLE SODIUM
     Dosage: 40 MG, UNK

REACTIONS (8)
  - Tremor [Unknown]
  - Insomnia [Recovered/Resolved]
  - Nausea [Unknown]
  - Hypertension [Unknown]
  - Nightmare [Recovered/Resolved]
  - Somnolence [Unknown]
  - Chills [Not Recovered/Not Resolved]
  - Feeling of body temperature change [Not Recovered/Not Resolved]
